FAERS Safety Report 18606889 (Version 1)
Quarter: 2020Q4

REPORT INFORMATION
  Report Type: Spontaneous
  Country: US (occurrence: US)
  Receive Date: 20201211
  Receipt Date: 20201211
  Transmission Date: 20210114
  Serious: Yes (Other)
  Sender: FDA-Public Use
  Company Number: US-PFIZER INC-2020488360

PATIENT
  Age: 69 Year
  Sex: Male

DRUGS (1)
  1. VYNDAMAX [Suspect]
     Active Substance: TAFAMIDIS
     Indication: AMYLOIDOSIS
     Dosage: 61 MG

REACTIONS (6)
  - Palpitations [Unknown]
  - Sinus disorder [Unknown]
  - Productive cough [Unknown]
  - Atrial fibrillation [Unknown]
  - Dyspnoea [Unknown]
  - Off label use [Unknown]
